FAERS Safety Report 9986163 (Version 1)
Quarter: 2014Q1

REPORT INFORMATION
  Report Type: Report from Study
  Country: US (occurrence: US)
  Receive Date: 20140307
  Receipt Date: 20140307
  Transmission Date: 20141002
  Serious: No
  Sender: FDA-Public Use
  Company Number: US-ABBVIE-13P-163-1086674-00

PATIENT
  Age: 32 Year
  Sex: Female
  Weight: 93.07 kg

DRUGS (2)
  1. HUMIRA [Suspect]
     Indication: PSORIASIS
     Dates: start: 20130417, end: 20130417
  2. HUMIRA [Suspect]
     Dates: start: 20130425

REACTIONS (1)
  - Injection site bruising [Not Recovered/Not Resolved]
